FAERS Safety Report 15688403 (Version 1)
Quarter: 2018Q4

REPORT INFORMATION
  Report Type: Spontaneous
  Country: CZ (occurrence: CZ)
  Receive Date: 20181205
  Receipt Date: 20181205
  Transmission Date: 20190205
  Serious: Yes (Other)
  Sender: FDA-Public Use
  Company Number: CZ-009507513-1811CZE012340

PATIENT
  Sex: Female

DRUGS (3)
  1. ELOCOM [Suspect]
     Active Substance: MOMETASONE FUROATE
     Route: 003
  2. LOCOID [Suspect]
     Active Substance: HYDROCORTISONE BUTYRATE
     Dosage: UNK
  3. TRIAMCINOLONE ACETONIDE. [Suspect]
     Active Substance: TRIAMCINOLONE ACETONIDE

REACTIONS (6)
  - Contraindicated product prescribed [Recovered/Resolved with Sequelae]
  - Skin infection [Recovering/Resolving]
  - Application site erythema [Unknown]
  - Skin burning sensation [Unknown]
  - Localised infection [Recovered/Resolved with Sequelae]
  - Fungal infection [Not Recovered/Not Resolved]

NARRATIVE: CASE EVENT DATE: 2018
